FAERS Safety Report 9783439 (Version 4)
Quarter: 2014Q1

REPORT INFORMATION
  Report Type: Spontaneous
  Country: IT (occurrence: IT)
  Receive Date: 20131226
  Receipt Date: 20140122
  Transmission Date: 20141002
  Serious: Yes (Other)
  Sender: FDA-Public Use
  Company Number: IT-PFIZER INC-2013365687

PATIENT
  Age: 92 Year
  Sex: Female

DRUGS (4)
  1. CARDURA [Suspect]
     Indication: HYPERTENSION
     Dosage: 2 MG, DAILY
     Route: 048
     Dates: end: 20131029
  2. LASIX [Suspect]
     Indication: HYPERTENSION
     Dosage: 75 MG, DAILY
     Dates: end: 20131029
  3. CARVIPRESS [Suspect]
     Indication: MYOCARDIAL ISCHAEMIA
     Dosage: UNK
  4. LANSOPRAZOLO [Concomitant]
     Dosage: 30 MG, UNK
     Route: 048
     Dates: end: 20131102

REACTIONS (2)
  - Syncope [Recovering/Resolving]
  - Upper limb fracture [Recovering/Resolving]
